FAERS Safety Report 9179882 (Version 1)
Quarter: 2012Q4

REPORT INFORMATION
  Report Type: Report from Study
  Country: DE (occurrence: DE)
  Receive Date: 20121029
  Receipt Date: 20121029
  Transmission Date: 20130627
  Serious: Yes (Life-Threatening, Hospitalization, Other)
  Sender: FDA-Public Use
  Company Number: DE-ABBOTT-09P-062-0583557-02

PATIENT
  Age: 49 None
  Sex: Male
  Weight: 58 kg

DRUGS (8)
  1. HUMIRA [Suspect]
     Indication: CROHN^S DISEASE
     Route: 058
     Dates: start: 20081110, end: 20090616
  2. MESALAZINE [Concomitant]
     Indication: CROHN^S DISEASE
  3. BUDESONIDE [Concomitant]
     Indication: CROHN^S DISEASE
     Dates: start: 1993
  4. PREDNISOLONE [Concomitant]
     Indication: CROHN^S DISEASE
     Dates: start: 1993
  5. PANTOPRAZOLE SODIUM SESQUIHYDRATE [Concomitant]
     Indication: OESOPHAGITIS
     Dates: start: 2008
  6. PANTOPRAZOLE SODIUM SESQUIHYDRATE [Concomitant]
     Indication: PROPHYLAXIS
  7. POTASSIUM CHLORIDE [Concomitant]
     Indication: HYPOKALAEMIA
     Dates: start: 2008
  8. POTASSIUM CHLORIDE [Concomitant]
     Indication: PROPHYLAXIS

REACTIONS (7)
  - Pneumothorax [Recovered/Resolved]
  - Crohn^s disease [Recovered/Resolved]
  - Gastric fistula [Recovered/Resolved]
  - Acute respiratory distress syndrome [Recovered/Resolved]
  - Septic shock [Recovered/Resolved]
  - Pneumonia fungal [Recovered/Resolved]
  - Pneumonia [Recovered/Resolved]
